FAERS Safety Report 4519374-6 (Version None)
Quarter: 2004Q4

REPORT INFORMATION
  Report Type: 
  Country: None (occurrence: None)
  Receive Date: 20041202
  Receipt Date: 20041118
  Transmission Date: 20050328
  Serious: Yes (Other)
  Sender: FDA-Public Use
  Company Number: GRP04000228

PATIENT
  Sex: Female

DRUGS (1)
  1. ACTONEL [Suspect]

REACTIONS (2)
  - NORMAL PRESSURE HYDROCEPHALUS [None]
  - OEDEMA PERIPHERAL [None]
